FAERS Safety Report 4650947-6 (Version None)
Quarter: 2005Q2

REPORT INFORMATION
  Report Type: 
  Country: None (occurrence: None)
  Receive Date: 20050503
  Receipt Date: 20050426
  Transmission Date: 20051028
  Serious: Yes (Other)
  Sender: FDA-Public Use
  Company Number: US-GLAXOSMITHKLINE-A0555788A

PATIENT
  Age: 59 Year
  Sex: Female

DRUGS (1)
  1. AQUAFRESH EXTREME CLEAN WHITENING TOOTHPASTE [Suspect]
     Indication: DENTAL CARE
     Dates: start: 20050401

REACTIONS (7)
  - COUGH [None]
  - EAR PRURITUS [None]
  - EXTRAOCULAR MUSCLE PARESIS [None]
  - NASAL CONGESTION [None]
  - NASAL DISCOMFORT [None]
  - PULMONARY CONGESTION [None]
  - UPPER RESPIRATORY TRACT CONGESTION [None]
